FAERS Safety Report 7490544-0 (Version None)
Quarter: 2011Q2

REPORT INFORMATION
  Report Type: 
  Country: None (occurrence: None)
  Receive Date: 20110519
  Receipt Date: 20110517
  Transmission Date: 20111010
  Serious: Yes (Other)
  Sender: FDA-Public Use
  Company Number: US-PFIZER INC-2011106043

PATIENT
  Sex: Female
  Weight: 95.2 kg

DRUGS (2)
  1. EFFEXOR XR [Suspect]
     Indication: DEPRESSION
     Dosage: 150 MG, 2X/DAY
  2. METOPROLOL [Concomitant]
     Indication: CARDIAC DISORDER
     Dosage: 50 MG, UNK

REACTIONS (5)
  - CONFUSIONAL STATE [None]
  - DRUG DISPENSING ERROR [None]
  - COGNITIVE DISORDER [None]
  - DEMENTIA [None]
  - IMPAIRED DRIVING ABILITY [None]
